FAERS Safety Report 8848319 (Version 1)
Quarter: 2012Q4

REPORT INFORMATION
  Report Type: 
  Country: US (occurrence: US)
  Receive Date: 20121019
  Receipt Date: 20121019
  Transmission Date: 20130627
  Serious: Yes (Hospitalization)
  Sender: FDA-Public Use
  Company Number: US-MYLANLABS-2012S1021129

PATIENT
  Age: 23 Year
  Sex: Female
  Weight: 64 kg

DRUGS (2)
  1. PHENYTOIN [Suspect]
     Indication: CONVULSION
     Route: 065
  2. PHENOBARBITAL [Suspect]
     Indication: CONVULSION
     Route: 065

REACTIONS (2)
  - Convulsion [Recovered/Resolved]
  - Vitamin D deficiency [Unknown]
